FAERS Safety Report 25761711 (Version 1)
Quarter: 2025Q3

REPORT INFORMATION
  Report Type: Spontaneous
  Country: HK (occurrence: None)
  Receive Date: 20250903
  Receipt Date: 20250903
  Transmission Date: 20251021
  Serious: Yes (Disabling)
  Sender: FDA-CTU
  Company Number: None

PATIENT
  Age: 30 Year
  Sex: Female
  Weight: 48 kg

DRUGS (1)
  1. UNAPPROVED DRUG COSMETIC PRODUCTS [Suspect]
     Active Substance: UNAPPROVED DRUG COSMETIC PRODUCTS
     Indication: Skin disorder
     Route: 058
     Dates: start: 20250814, end: 20250814

REACTIONS (3)
  - Skin disorder [None]
  - Skin texture abnormal [None]
  - Scar [None]

NARRATIVE: CASE EVENT DATE: 20250814
